FAERS Safety Report 14344991 (Version 4)
Quarter: 2018Q1

REPORT INFORMATION
  Report Type: Report from Study
  Country: DE (occurrence: DE)
  Receive Date: 20180103
  Receipt Date: 20180221
  Transmission Date: 20180509
  Serious: Yes (Hospitalization, Other)
  Sender: FDA-Public Use
  Company Number: DE-ROCHE-1846101

PATIENT
  Age: 81 Year
  Sex: Male
  Weight: 93.3 kg

DRUGS (10)
  1. PIXANTRONE [Suspect]
     Active Substance: PIXANTRONE
     Indication: B-CELL LYMPHOMA
     Dosage: PIXANTRONE: 50 MG/METER SQURE PIXANTRONE ON DAY 1,8,15 OF EACH 28 D CYCLE?MOST RECENT DOSE PRIOR TO
     Route: 065
     Dates: start: 20160919, end: 20161114
  2. TAZOBACTAM/PIPERACILLIN [Suspect]
     Active Substance: PIPERACILLIN SODIUM\TAZOBACTAM SODIUM
     Indication: INFECTION
     Route: 065
  3. DIGOXIN. [Concomitant]
     Active Substance: DIGOXIN
     Indication: ATRIAL FIBRILLATION
     Route: 048
  4. OBINUTUZUMAB. [Suspect]
     Active Substance: OBINUTUZUMAB
     Indication: B-CELL LYMPHOMA
     Dosage: MOST RECENT DOSE PRIOR TO INFECTION 17/OCT/2016?MOST RECENT DOSE PRIOR TO KIDNEY FAILURE 14/NOV/2016
     Route: 042
     Dates: start: 20160919, end: 20161114
  5. PIXANTRONE [Suspect]
     Active Substance: PIXANTRONE
     Indication: DIFFUSE LARGE B-CELL LYMPHOMA
     Dosage: MOST RECENT DOSE PRIOR TO KIDNEY FAILURE 14/NOV/2016?DRUG INTERUPTED 21/NOV/2016
     Route: 065
     Dates: start: 20161114
  6. TORSEMIDE. [Concomitant]
     Active Substance: TORSEMIDE
     Indication: OEDEMA PERIPHERAL
     Route: 048
     Dates: start: 20160922
  7. OBINUTUZUMAB. [Suspect]
     Active Substance: OBINUTUZUMAB
     Indication: DIFFUSE LARGE B-CELL LYMPHOMA
  8. ZYLORIC [Concomitant]
     Active Substance: ALLOPURINOL
     Indication: PROPHYLAXIS
     Route: 048
     Dates: start: 20160917
  9. RAMIPRIL. [Concomitant]
     Active Substance: RAMIPRIL
     Indication: HYPERTENSION
     Route: 048
  10. METOPROLOL. [Concomitant]
     Active Substance: METOPROLOL
     Indication: HYPERTENSION
     Route: 048

REACTIONS (4)
  - Hyperkalaemia [Recovered/Resolved]
  - Infection [Recovered/Resolved]
  - Renal failure [Recovered/Resolved]
  - Gamma-glutamyltransferase increased [Recovering/Resolving]

NARRATIVE: CASE EVENT DATE: 20161017
